FAERS Safety Report 24309236 (Version 1)
Quarter: 2024Q3

REPORT INFORMATION
  Report Type: Report from Study
  Country: US (occurrence: US)
  Receive Date: 20240911
  Receipt Date: 20240911
  Transmission Date: 20241016
  Serious: No
  Sender: ROCHE
  Company Number: US-ROCHE-2626492

PATIENT
  Age: 59 Year
  Sex: Female

DRUGS (3)
  1. OCREVUS [Suspect]
     Active Substance: OCRELIZUMAB
     Indication: Multiple sclerosis
     Route: 065
     Dates: start: 20170906
  2. OCREVUS [Suspect]
     Active Substance: OCRELIZUMAB
     Dosage: 300MG SINGLE-VIAL USE
     Route: 065
     Dates: end: 20201112
  3. OCREVUS [Suspect]
     Active Substance: OCRELIZUMAB
     Route: 065

REACTIONS (11)
  - Headache [Recovered/Resolved]
  - Herpes simplex [Unknown]
  - Vitamin D deficiency [Unknown]
  - Obesity [Unknown]
  - Pain [Unknown]
  - Ileus paralytic [Unknown]
  - Urinary tract infection [Unknown]
  - Oedema [Unknown]
  - COVID-19 [Unknown]
  - Gastrointestinal hypomotility [Unknown]
  - Off label use [Unknown]

NARRATIVE: CASE EVENT DATE: 20200612
